FAERS Safety Report 7512395-0 (Version None)
Quarter: 2011Q2

REPORT INFORMATION
  Report Type: 
  Country: None (occurrence: None)
  Receive Date: 20110531
  Receipt Date: 20110524
  Transmission Date: 20111010
  Serious: Yes (Other)
  Sender: FDA-Public Use
  Company Number: US-ABBOTT-11P-163-0728111-00

PATIENT
  Sex: Female
  Weight: 75.818 kg

DRUGS (11)
  1. PRILOSEC [Concomitant]
     Indication: GASTROOESOPHAGEAL REFLUX DISEASE
  2. STOOL SOFTENER [Concomitant]
     Indication: CONSTIPATION
  3. OXYCONTIN [Concomitant]
     Indication: SARCOIDOSIS
  4. PREMARIN [Concomitant]
     Indication: MENOPAUSE
  5. METHOTREXATE [Concomitant]
     Indication: RHEUMATOID ARTHRITIS
  6. POTASSIUM CHLORIDE [Concomitant]
     Indication: PRODUCT USED FOR UNKNOWN INDICATION
  7. HUMIRA [Suspect]
     Indication: RHEUMATOID ARTHRITIS
     Route: 058
     Dates: start: 20110422
  8. ATENOLOL [Concomitant]
     Indication: HYPERTENSION
  9. FOLIC ACID [Concomitant]
     Indication: PRODUCT USED FOR UNKNOWN INDICATION
  10. NEBULIZER [Concomitant]
     Indication: ASTHMA
  11. PREDNISONE [Concomitant]
     Indication: RHEUMATOID ARTHRITIS

REACTIONS (7)
  - HYPERHIDROSIS [None]
  - BLOOD GLUCOSE DECREASED [None]
  - LOSS OF CONSCIOUSNESS [None]
  - FEELING HOT [None]
  - DYSPNOEA [None]
  - NAUSEA [None]
  - BLOOD PRESSURE INCREASED [None]
